FAERS Safety Report 21773423 (Version 5)
Quarter: 2023Q2

REPORT INFORMATION
  Report Type: Spontaneous
  Country: DE (occurrence: DE)
  Receive Date: 20221223
  Receipt Date: 20230609
  Transmission Date: 20230721
  Serious: Yes (Hospitalization, Other)
  Sender: FDA-Public Use
  Company Number: DE-ABBVIE-4228004

PATIENT
  Age: 44 Year
  Sex: Female

DRUGS (15)
  1. INFLIXIMAB [Suspect]
     Active Substance: INFLIXIMAB
     Dosage: 800 MG, BIW
     Route: 065
     Dates: start: 20220106, end: 20220120
  2. SIMPONI [Suspect]
     Active Substance: GOLIMUMAB
     Dosage: 50 MG, Q4W
     Route: 065
     Dates: start: 20220209, end: 20220309
  3. BUPIVACAINE HYDROCHLORIDE [Suspect]
     Active Substance: BUPIVACAINE HYDROCHLORIDE
     Dosage: UNK
     Route: 014
  4. RINVOQ [Suspect]
     Active Substance: UPADACITINIB
     Indication: Psoriatic arthropathy
     Dosage: 15 MG, DAILY (15 MG, QD)
     Route: 048
     Dates: start: 20211029, end: 20220105
  5. RINVOQ [Suspect]
     Active Substance: UPADACITINIB
     Dosage: 15 MG, DAILY (15 MG, QD)
     Route: 048
     Dates: start: 20220209, end: 20220421
  6. RINVOQ [Suspect]
     Active Substance: UPADACITINIB
     Dosage: 15 MG
     Route: 048
     Dates: start: 20220527, end: 20220603
  7. TREMFYA [Suspect]
     Active Substance: GUSELKUMAB
     Dosage: 100 MG
     Route: 065
     Dates: start: 20210831, end: 20210928
  8. TREMFYA [Suspect]
     Active Substance: GUSELKUMAB
     Dosage: 100 MG, 8 WEEKS
     Route: 065
     Dates: start: 20220309
  9. SKYRIZI [Suspect]
     Active Substance: RISANKIZUMAB-RZAA
     Dosage: 150 MG
     Route: 058
     Dates: start: 20220630, end: 20220728
  10. BISOPROLOL FUMARATE [Concomitant]
     Active Substance: BISOPROLOL FUMARATE
     Dosage: UNK
  11. PANTOPRAZOLE SODIUM [Concomitant]
     Active Substance: PANTOPRAZOLE SODIUM
     Dosage: UNK
  12. ETORICOXIB [Concomitant]
     Active Substance: ETORICOXIB
     Dosage: THREE DOSES OF 90 MG
     Dates: start: 20171121, end: 20180903
  13. ETORICOXIB [Concomitant]
     Active Substance: ETORICOXIB
     Dosage: UNK
     Dates: start: 20211214, end: 20220218
  14. STELARA [Concomitant]
     Active Substance: USTEKINUMAB
     Dosage: UNK
     Dates: start: 20171124, end: 20211223
  15. VITAMIN D/ CALCIUM [Concomitant]
     Dosage: UNK

REACTIONS (13)
  - Drug hypersensitivity [Recovered/Resolved]
  - Psoriatic arthropathy [Recovered/Resolved]
  - Staphylococcal infection [Unknown]
  - Drug eruption [Recovered/Resolved]
  - Arthralgia [Recovered/Resolved]
  - Axial spondyloarthritis [Recovered/Resolved]
  - Pyelocaliectasis [Unknown]
  - Dyspnoea [Unknown]
  - Pruritus [Unknown]
  - Chest pain [Unknown]
  - Sinusitis [Unknown]
  - Heart valve incompetence [Unknown]
  - COVID-19 [Unknown]

NARRATIVE: CASE EVENT DATE: 20220101
